FAERS Safety Report 20851041 (Version 2)
Quarter: 2022Q3

REPORT INFORMATION
  Report Type: Spontaneous
  Country: IN (occurrence: IN)
  Receive Date: 20220519
  Receipt Date: 20220801
  Transmission Date: 20221026
  Serious: Yes (Other)
  Sender: FDA-Public Use
  Company Number: IN-PFIZER INC-202200697583

PATIENT
  Age: 48 Year
  Sex: Female

DRUGS (36)
  1. PALBOCICLIB [Suspect]
     Active Substance: PALBOCICLIB
     Dosage: 125 MG, 1X/DAY (1-0-0 X 21DAY/28 DAYS)
     Dates: start: 20210909
  2. PALBOCICLIB [Suspect]
     Active Substance: PALBOCICLIB
     Dosage: 125 MG, 1X/DAY (21 DAYS EVERY 28 DAYS)
     Route: 048
     Dates: start: 20210910
  3. PALBOCICLIB [Suspect]
     Active Substance: PALBOCICLIB
     Dosage: UNK
     Dates: start: 20211014
  4. PALBOCICLIB [Suspect]
     Active Substance: PALBOCICLIB
     Dosage: UNK
     Dates: start: 20211015
  5. PALBOCICLIB [Suspect]
     Active Substance: PALBOCICLIB
     Dosage: UNK
     Dates: start: 20211016
  6. PALBOCICLIB [Suspect]
     Active Substance: PALBOCICLIB
     Dosage: UNK
     Dates: start: 20211017
  7. PALBOCICLIB [Suspect]
     Active Substance: PALBOCICLIB
     Dosage: UNK
     Dates: start: 20211018
  8. PALBOCICLIB [Suspect]
     Active Substance: PALBOCICLIB
     Dosage: UNK
     Dates: start: 20211019
  9. PALBOCICLIB [Suspect]
     Active Substance: PALBOCICLIB
     Dosage: UNK
     Dates: start: 20211020
  10. PALBOCICLIB [Suspect]
     Active Substance: PALBOCICLIB
     Dosage: UNK
     Dates: start: 20211021
  11. PALBOCICLIB [Suspect]
     Active Substance: PALBOCICLIB
     Dosage: UNK
     Dates: start: 20211022
  12. PALBOCICLIB [Suspect]
     Active Substance: PALBOCICLIB
     Dosage: UNK
     Dates: start: 20211023
  13. LETROZOLE [Concomitant]
     Active Substance: LETROZOLE
     Dosage: UNK, 1X/DAY (1-0-0)
     Dates: start: 20210909
  14. LETROZOLE [Concomitant]
     Active Substance: LETROZOLE
     Dosage: UNK
     Dates: start: 20211014
  15. LETROZOLE [Concomitant]
     Active Substance: LETROZOLE
     Dosage: UNK
     Dates: start: 20211015
  16. LETROZOLE [Concomitant]
     Active Substance: LETROZOLE
     Dosage: UNK
     Dates: start: 20211016
  17. LETROZOLE [Concomitant]
     Active Substance: LETROZOLE
     Dosage: UNK
     Dates: start: 20211017
  18. LETROZOLE [Concomitant]
     Active Substance: LETROZOLE
     Dosage: UNK
     Dates: start: 20211018
  19. LETROZOLE [Concomitant]
     Active Substance: LETROZOLE
     Dosage: UNK
     Dates: start: 20211019
  20. LETROZOLE [Concomitant]
     Active Substance: LETROZOLE
     Dosage: UNK
     Dates: start: 20211020
  21. LETROZOLE [Concomitant]
     Active Substance: LETROZOLE
     Dosage: UNK
     Dates: start: 20211021
  22. LETROZOLE [Concomitant]
     Active Substance: LETROZOLE
     Dosage: UNK
     Dates: start: 20211022
  23. LETROZOLE [Concomitant]
     Active Substance: LETROZOLE
     Dosage: UNK
     Dates: start: 20211023
  24. CALCIUM CARBONATE\CHOLECALCIFEROL [Concomitant]
     Active Substance: CALCIUM CARBONATE\CHOLECALCIFEROL
     Dosage: UNK, 1X/DAY (30, 1-0-0)
     Dates: start: 20210909
  25. ZA [Concomitant]
     Dosage: UNK
  26. ZA [Concomitant]
     Dosage: UNK
     Dates: start: 20211014
  27. ZA [Concomitant]
     Dosage: UNK
     Dates: start: 20211015
  28. ZA [Concomitant]
     Dosage: UNK
     Dates: start: 20211016
  29. ZA [Concomitant]
     Dosage: UNK
     Dates: start: 20211017
  30. ZA [Concomitant]
     Dosage: UNK
     Dates: start: 20211018
  31. ZA [Concomitant]
     Dosage: UNK
     Dates: start: 20211019
  32. ZA [Concomitant]
     Dosage: UNK
     Dates: start: 20211020
  33. ZA [Concomitant]
     Dosage: UNK
     Dates: start: 20211021
  34. ZA [Concomitant]
     Dosage: UNK
     Dates: start: 20211022
  35. ZA [Concomitant]
     Dosage: UNK
     Dates: start: 20211023
  36. IDROFOS [Concomitant]
     Dosage: UNK

REACTIONS (8)
  - Neuropathy peripheral [Unknown]
  - Haemoglobin decreased [Unknown]
  - White blood cell count decreased [Unknown]
  - Back pain [Unknown]
  - Constipation [Unknown]
  - Neoplasm progression [Unknown]
  - Spinal osteoarthritis [Unknown]
  - Toxicity to various agents [Unknown]
